FAERS Safety Report 7866685-2 (Version None)
Quarter: 2011Q4

REPORT INFORMATION
  Report Type: 
  Country: None (occurrence: None)
  Receive Date: 20111028
  Receipt Date: 20110729
  Transmission Date: 20120403
  Serious: No
  Sender: FDA-Public Use
  Company Number: US-GLAXOSMITHKLINE-A0939106A

PATIENT
  Age: 81 Year
  Sex: Female

DRUGS (4)
  1. ADVAIR DISKUS 100/50 [Suspect]
     Indication: CHRONIC OBSTRUCTIVE PULMONARY DISEASE
     Dosage: 2PUFF TWICE PER DAY
     Route: 055
     Dates: start: 20110721, end: 20110725
  2. SYNTHROID [Concomitant]
  3. VITAMIN TAB [Concomitant]
  4. ASPIRIN [Concomitant]

REACTIONS (8)
  - DIZZINESS [None]
  - HEADACHE [None]
  - INSOMNIA [None]
  - ASTHENIA [None]
  - JOINT SWELLING [None]
  - OEDEMA PERIPHERAL [None]
  - DRY MOUTH [None]
  - MALAISE [None]
